FAERS Safety Report 8218376-6 (Version None)
Quarter: 2012Q1

REPORT INFORMATION
  Report Type: 
  Country: None (occurrence: None)
  Receive Date: 20120319
  Receipt Date: 20120313
  Transmission Date: 20120608
  Serious: Yes (Congenital Anomaly)
  Sender: FDA-Public Use
  Company Number: GB-GLAXOSMITHKLINE-B0568625A

PATIENT
  Age: 12 Week
  Sex: Male

DRUGS (7)
  1. AMOXICILLIN [Suspect]
     Dosage: 750MG PER DAY
     Route: 064
     Dates: start: 20080707, end: 20080714
  2. QUETIAPINE [Suspect]
     Indication: BIPOLAR DISORDER
     Route: 064
     Dates: start: 20080421, end: 20080616
  3. REBOXETINE [Suspect]
     Indication: BIPOLAR DISORDER
     Route: 064
     Dates: start: 20050101, end: 20080529
  4. CODEINE SULFATE [Suspect]
     Route: 064
  5. FERROUS SULFATE TAB [Suspect]
     Dosage: 400MG PER DAY
     Route: 064
     Dates: start: 20081006
  6. LITHIUM CARBONATE [Suspect]
     Indication: BIPOLAR DISORDER
     Route: 064
     Dates: start: 20050101
  7. VENLAFAXINE [Suspect]
     Indication: BIPOLAR DISORDER
     Route: 064
     Dates: start: 20050624

REACTIONS (2)
  - PIERRE ROBIN SYNDROME [None]
  - MATERNAL EXPOSURE DURING PREGNANCY [None]
